FAERS Safety Report 6196081-8 (Version None)
Quarter: 2009Q2

REPORT INFORMATION
  Report Type: 
  Country: None (occurrence: None)
  Receive Date: 20090512
  Receipt Date: 20090506
  Transmission Date: 20091009
  Serious: Yes (Hospitalization)
  Sender: FDA-Public Use
  Company Number: THYM-1001047

PATIENT
  Age: 27 Year
  Sex: Male
  Weight: 61.8 kg

DRUGS (7)
  1. THYMOGLOBULIN [Suspect]
     Indication: APLASTIC ANAEMIA
     Dosage: INTRAVENOUS
     Route: 042
     Dates: start: 20090218, end: 20090223
  2. CYCLOSPORINE [Suspect]
     Indication: APLASTIC ANAEMIA
     Dates: start: 20090218
  3. ACETAMINOPHEN [Concomitant]
  4. CODEINE PHOSPHATE (CODEINE PHOSPHATE) [Concomitant]
  5. OMEPRAZOLE [Concomitant]
  6. ACYCLOVIR [Concomitant]
  7. NEOMYCIN (NEOMYCIN) [Concomitant]

REACTIONS (2)
  - FEBRILE NEUTROPENIA [None]
  - LOWER RESPIRATORY TRACT INFECTION FUNGAL [None]
